FAERS Safety Report 11718163 (Version 2)
Quarter: 2015Q4

REPORT INFORMATION
  Report Type: Spontaneous
  Country: US (occurrence: US)
  Receive Date: 20151110
  Receipt Date: 20151126
  Transmission Date: 20160304
  Serious: Yes (Other)
  Sender: FDA-Public Use
  Company Number: US-ASTRAZENECA-2015SF06805

PATIENT
  Sex: Female
  Weight: 83.5 kg

DRUGS (3)
  1. PLAVIX [Concomitant]
     Active Substance: CLOPIDOGREL BISULFATE
     Indication: ANTICOAGULANT THERAPY
  2. ALPRAZOLAM. [Concomitant]
     Active Substance: ALPRAZOLAM
     Indication: NERVOUS SYSTEM DISORDER
  3. SYMBICORT [Suspect]
     Active Substance: BUDESONIDE\FORMOTEROL FUMARATE DIHYDRATE
     Indication: CHRONIC OBSTRUCTIVE PULMONARY DISEASE
     Dosage: 160MCG/4.5MCG, TWO PUFFS TWICE DAILY
     Route: 055

REACTIONS (7)
  - Device failure [Unknown]
  - Hip fracture [Unknown]
  - Fall [Unknown]
  - Arthritis [Not Recovered/Not Resolved]
  - Gait disturbance [Not Recovered/Not Resolved]
  - Weight increased [Not Recovered/Not Resolved]
  - Body height decreased [Not Recovered/Not Resolved]

NARRATIVE: CASE EVENT DATE: 20150226
